FAERS Safety Report 20848698 (Version 4)
Quarter: 2022Q2

REPORT INFORMATION
  Report Type: Spontaneous
  Country: US (occurrence: US)
  Receive Date: 20220519
  Receipt Date: 20220620
  Transmission Date: 20220721
  Serious: Yes (Other)
  Sender: FDA-Public Use
  Company Number: US-PFIZER INC-2019561580

PATIENT
  Age: 78 Year
  Sex: Female
  Weight: 60.78 kg

DRUGS (4)
  1. ESTRING [Suspect]
     Active Substance: ESTRADIOL
     Indication: Cystitis
     Dosage: 2 MG, EVERY 3 MONTHS
     Route: 067
     Dates: start: 20191125
  2. ESTRING [Suspect]
     Active Substance: ESTRADIOL
     Indication: Vulvovaginal dryness
     Dosage: 2 MG, EVERY 3 MONTHS
     Route: 067
     Dates: start: 20200123
  3. ESTRING [Suspect]
     Active Substance: ESTRADIOL
     Indication: Cystocele
     Dosage: 2 MG, EVERY 3 MONTHS
     Route: 067
     Dates: start: 20201026
  4. ESTRING [Suspect]
     Active Substance: ESTRADIOL
     Dosage: 2 MG, EVERY 3 MONTHS
     Route: 067
     Dates: start: 20211124

REACTIONS (2)
  - Vaginal pessary insertion [Unknown]
  - Off label use [Unknown]
